FAERS Safety Report 8890107 (Version 2)
Quarter: 2012Q4

REPORT INFORMATION
  Report Type: 
  Country: US (occurrence: US)
  Receive Date: 20121107
  Receipt Date: 20121207
  Transmission Date: 20130627
  Serious: No
  Sender: FDA-Public Use
  Company Number: US-ROXANE LABORATORIES, INC.-2012-RO-02345RO

PATIENT
  Sex: Male

DRUGS (2)
  1. FLUTICASONE [Suspect]
     Indication: PROPHYLAXIS
     Route: 055
     Dates: start: 201210
  2. ZYRTEC [Concomitant]
     Indication: SEASONAL ALLERGY

REACTIONS (2)
  - Drug ineffective for unapproved indication [Not Recovered/Not Resolved]
  - Scab [Not Recovered/Not Resolved]
